FAERS Safety Report 7669258-X (Version None)
Quarter: 2011Q3

REPORT INFORMATION
  Report Type: 
  Country: None (occurrence: None)
  Receive Date: 20110808
  Receipt Date: 20110801
  Transmission Date: 20111222
  Serious: Yes (Disabling)
  Sender: FDA-Public Use
  Company Number: PHHY2011US66005

PATIENT
  Sex: Female
  Weight: 42.177 kg

DRUGS (6)
  1. WELLBUTRIN SR [Concomitant]
     Route: 048
  2. ATENOLOL [Concomitant]
     Dosage: 25 MG, UNK
     Route: 048
  3. OXYBUTYNIN [Concomitant]
     Dosage: 5 MG, BID
     Route: 048
  4. DRISDOL [Concomitant]
     Dosage: 50000 U, QMO
     Route: 048
     Dates: start: 20110419
  5. LIOTHYRONINE SODIUM [Concomitant]
     Dosage: 5 MG, BID
     Route: 048
  6. ZOMETA [Suspect]
     Indication: BREAST CANCER
     Dosage: 4 MG, EVERY 6 MONTHS
     Dates: start: 20110412, end: 20110412

REACTIONS (2)
  - PAIN IN JAW [None]
  - TOOTH FRACTURE [None]
